FAERS Safety Report 10516249 (Version 1)
Quarter: 2014Q3

REPORT INFORMATION
  Report Type: Spontaneous
  Country: US (occurrence: None)
  Receive Date: 20140926
  Receipt Date: 20140926
  Transmission Date: 20150326
  Serious: No
  Sender: FDA-Public Use
  Company Number: 1000069817

PATIENT
  Sex: Female

DRUGS (1)
  1. LINZESS [Suspect]
     Active Substance: LINACLOTIDE
     Dosage: 290 MCG ( 290 MCG, 1 IN 1 D), ORAL
     Dates: start: 2014

REACTIONS (1)
  - Urticaria [None]

NARRATIVE: CASE EVENT DATE: 201407
